FAERS Safety Report 9809167 (Version 2)
Quarter: 2014Q2

REPORT INFORMATION
  Report Type: Spontaneous
  Country: DZ (occurrence: DZ)
  Receive Date: 20140110
  Receipt Date: 20140619
  Transmission Date: 20141212
  Serious: Yes (Death, Hospitalization)
  Sender: FDA-Public Use
  Company Number: DZ-ABBVIE-14P-003-1187574-00

PATIENT
  Age: 65 Year
  Sex: Female

DRUGS (2)
  1. HUMIRA [Suspect]
     Indication: CROHN^S DISEASE
     Dosage: 1 INJECTION
     Route: 058
     Dates: start: 20130626
  2. HUMIRA [Suspect]
     Route: 058
     Dates: end: 20131113

REACTIONS (2)
  - Fistula [Fatal]
  - Sepsis [Fatal]
